FAERS Safety Report 21362566 (Version 1)
Quarter: 2022Q3

REPORT INFORMATION
  Report Type: Spontaneous
  Country: DE (occurrence: DE)
  Receive Date: 20220922
  Receipt Date: 20220922
  Transmission Date: 20221027
  Serious: Yes (Hospitalization, Other)
  Sender: FDA-Public Use
  Company Number: DE-ADRED-07412-02

PATIENT
  Age: 83 Year
  Sex: Male
  Weight: 68 kg

DRUGS (12)
  1. CLOPIDOGREL [Suspect]
     Active Substance: CLOPIDOGREL BISULFATE
     Indication: Product used for unknown indication
     Dosage: 75 MILLIGRAM,0-1-0-0
     Route: 048
  2. RIVAROXABAN [Suspect]
     Active Substance: RIVAROXABAN
     Indication: Product used for unknown indication
     Dosage: 15 MILLIGRAM,, 1-0-0-0
     Route: 048
  3. ATORVASTATIN [Concomitant]
     Active Substance: ATORVASTATIN
     Indication: Product used for unknown indication
     Dosage: 40 MILLIGRAM,, 0-0-1-0
     Route: 048
  4. BISOPROLOL [Concomitant]
     Active Substance: BISOPROLOL
     Indication: Product used for unknown indication
     Dosage: 2.5 MILLIGRAM,, 1-0-1-0
     Route: 048
  5. CANDESARTAN [Concomitant]
     Active Substance: CANDESARTAN
     Indication: Product used for unknown indication
     Dosage: 16 MILLIGRAM,1-0-1-0
     Route: 048
  6. EPLERENONE [Concomitant]
     Active Substance: EPLERENONE
     Indication: Product used for unknown indication
     Dosage: 50 MILLIGRAM,, 1-0-0-0
     Route: 048
  7. GABAPENTIN [Concomitant]
     Active Substance: GABAPENTIN
     Indication: Product used for unknown indication
     Dosage: 300 MILLIGRAM,1-1-1-0
     Route: 048
  8. NITRENDIPINE [Concomitant]
     Active Substance: NITRENDIPINE
     Indication: Product used for unknown indication
     Dosage: 20 MILLIGRAM,1-0-1-0
     Route: 048
  9. PANTOPRAZOLE SODIUM [Concomitant]
     Active Substance: PANTOPRAZOLE SODIUM
     Indication: Product used for unknown indication
     Dosage: 40 MILLIGRAM,1-0-0-0
     Route: 048
  10. TROSPIUM [Concomitant]
     Active Substance: TROSPIUM
     Indication: Product used for unknown indication
     Dosage: 30 MILLIGRAM,1-0-0-0
     Route: 048
  11. TORSEMIDE [Concomitant]
     Active Substance: TORSEMIDE
     Indication: Product used for unknown indication
     Dosage: 10 MILLIGRAM,, 1-0-0-0
     Route: 048
  12. URAPIDIL [Concomitant]
     Active Substance: URAPIDIL
     Indication: Product used for unknown indication
     Dosage: 60 MILLIGRAM,1-0-1-1
     Route: 048

REACTIONS (2)
  - Urogenital haemorrhage [Unknown]
  - Anaemia [Unknown]

NARRATIVE: CASE EVENT DATE: 20210926
